FAERS Safety Report 23198690 (Version 1)
Quarter: 2023Q4

REPORT INFORMATION
  Report Type: Spontaneous
  Country: CZ (occurrence: CZ)
  Receive Date: 20231117
  Receipt Date: 20231117
  Transmission Date: 20240109
  Serious: Yes (Other)
  Sender: FDA-Public Use
  Company Number: CZ-JAZZ PHARMACEUTICALS-2023-CZ-022709

PATIENT
  Age: 36 Year
  Sex: Female

DRUGS (6)
  1. VYXEOS [Suspect]
     Active Substance: CYTARABINE\DAUNORUBICIN
     Indication: Acute myeloid leukaemia
     Dosage: 44 MG/100 MG/M2 (DAUNORUBICIN/CYTARABINE/M2) IN A 90-MINUTE INFUSION ON DAYS 1, 3, 5. IF NEEDED,, FI
     Route: 042
     Dates: start: 20230208
  2. VYXEOS [Suspect]
     Active Substance: CYTARABINE\DAUNORUBICIN
     Dosage: 44 MG OF DAUNORUBICIN PER 1 M2 OF THE PATIENT^S SURFACE IN D1 AND D3
     Route: 042
     Dates: start: 20230208
  3. CLADRIBINE [Concomitant]
     Active Substance: CLADRIBINE
     Indication: Product used for unknown indication
  4. CYTARABINE [Concomitant]
     Active Substance: CYTARABINE
     Indication: Product used for unknown indication
  5. FLUDARABINE [Concomitant]
     Active Substance: FLUDARABINE PHOSPHATE
     Indication: Product used for unknown indication
  6. BUSULFAN [Concomitant]
     Active Substance: BUSULFAN
     Indication: Product used for unknown indication

REACTIONS (4)
  - Pneumonia fungal [Unknown]
  - Rash [Unknown]
  - Pancytopenia [Unknown]
  - Gastrointestinal inflammation [Unknown]
